FAERS Safety Report 9064394 (Version 3)
Quarter: 2013Q3

REPORT INFORMATION
  Report Type: Report from Study
  Country: IL (occurrence: IL)
  Receive Date: 20130128
  Receipt Date: 20130719
  Transmission Date: 20140515
  Serious: Yes (Other)
  Sender: FDA-Public Use
  Company Number: PHHY2012IL083309

PATIENT
  Age: 25 Year
  Sex: Female
  Weight: 70 kg

DRUGS (6)
  1. SANDOSTATIN LAR [Suspect]
     Indication: ACROMEGALY
     Dosage: 20 MG EVERY 28 DAYS
     Dates: start: 20120723, end: 20120820
  2. SANDOSTATIN LAR [Suspect]
     Dosage: 20 MG EVERY 28 DAYS
     Dates: start: 20121224
  3. SANDOSTATIN LAR [Suspect]
     Dosage: 30 MG, 1Q4W
  4. SANDOSTATIN LAR [Suspect]
     Dosage: 30 MG, 1Q4W
     Dates: start: 20130516
  5. SANDOSTATIN LAR [Suspect]
     Dosage: 30 MG, 1Q4W
     Dates: start: 20130613
  6. SANDOSTATIN LAR [Suspect]
     Dosage: 30 MG, 1Q4W
     Dates: start: 20120723

REACTIONS (10)
  - Syncope [Unknown]
  - Fall [Recovering/Resolving]
  - Pallor [Recovered/Resolved]
  - Feeling abnormal [Unknown]
  - Malaise [Recovered/Resolved]
  - Abdominal pain [Unknown]
  - Nausea [Not Recovered/Not Resolved]
  - Vomiting [Unknown]
  - Asthenia [Recovered/Resolved]
  - Dizziness [Recovered/Resolved]
